FAERS Safety Report 8342776-7 (Version None)
Quarter: 2012Q2

REPORT INFORMATION
  Report Type: 
  Country: None (occurrence: None)
  Receive Date: 20120503
  Receipt Date: 20111102
  Transmission Date: 20120825
  Serious: Yes (Hospitalization)
  Sender: FDA-Public Use
  Company Number: BE-024250

PATIENT
  Age: 69 Year
  Sex: Male
  Weight: 82 kg

DRUGS (2)
  1. (CHLORAMBUCIL) [Suspect]
     Indication: CHRONIC LYMPHOCYTIC LEUKAEMIA
     Dosage: 10 MG/M2 CYCLIC
     Route: 048
     Dates: start: 20100930
  2. ACETAMINOPHEN [Concomitant]

REACTIONS (2)
  - BONE PAIN [None]
  - NEPHROLITHIASIS [None]
